FAERS Safety Report 14823714 (Version 2)
Quarter: 2018Q2

REPORT INFORMATION
  Report Type: Spontaneous
  Country: DE (occurrence: DE)
  Receive Date: 20180428
  Receipt Date: 20180531
  Transmission Date: 20180711
  Serious: Yes (Hospitalization)
  Sender: FDA-Public Use
  Company Number: DE-AUROBINDO-AUR-APL-2018-022891

PATIENT
  Age: 76 Year
  Sex: Male
  Weight: 85 kg

DRUGS (5)
  1. METOPROLOL. [Suspect]
     Active Substance: METOPROLOL
     Dosage: 48 MILLIGRAM, TWO TIMES A DAY
     Route: 048
  2. AMLODIPINE [Suspect]
     Active Substance: AMLODIPINE BESYLATE
     Indication: HYPERTENSION
     Dosage: 5 MG, BID
     Route: 065
  3. CANDESARTAN. [Suspect]
     Active Substance: CANDESARTAN
     Indication: HYPERTENSION
     Dosage: 32 MG, QD
     Route: 065
  4. DOXAZOSIN [Suspect]
     Active Substance: DOXAZOSIN\DOXAZOSIN MESYLATE
     Indication: HYPERTENSION
     Dosage: 8 MG, QD
     Route: 065
  5. METOPROLOL. [Suspect]
     Active Substance: METOPROLOL
     Indication: HYPERTENSION
     Dosage: 47.5 MG, BID
     Route: 065

REACTIONS (3)
  - Condition aggravated [Recovered/Resolved]
  - Drug ineffective [Recovered/Resolved]
  - Hypertension [Recovered/Resolved]
